FAERS Safety Report 10145666 (Version 1)
Quarter: 2014Q2

REPORT INFORMATION
  Report Type: Report from Study
  Country: US (occurrence: US)
  Receive Date: 20140501
  Receipt Date: 20140501
  Transmission Date: 20141212
  Serious: No
  Sender: FDA-Public Use
  Company Number: US-ABBVIE-14P-163-1189793-00

PATIENT
  Age: 48 Year
  Sex: Male
  Weight: 82.17 kg

DRUGS (4)
  1. CREON [Suspect]
     Indication: PANCREATITIS CHRONIC
     Dosage: 3 CAPSULES  WITH MEALS
     Dates: start: 2012
  2. LORTAB [Concomitant]
     Indication: PAIN
  3. VALIUM [Concomitant]
     Indication: SLEEP DISORDER THERAPY
  4. METFORMIN [Concomitant]
     Indication: DIABETES MELLITUS

REACTIONS (3)
  - Musculoskeletal chest pain [Not Recovered/Not Resolved]
  - Back pain [Not Recovered/Not Resolved]
  - Abdominal pain [Not Recovered/Not Resolved]
